FAERS Safety Report 7215716-1 (Version None)
Quarter: 2011Q1

REPORT INFORMATION
  Report Type: 
  Country: None (occurrence: None)
  Receive Date: 20110104
  Receipt Date: 20110104
  Transmission Date: 20110831
  Serious: No
  Sender: FDA-Public Use
  Company Number: None

PATIENT
  Age: 64 Year
  Sex: Male
  Weight: 77.5651 kg

DRUGS (1)
  1. LEVAQUIN [Suspect]
     Indication: BRONCHITIS
     Dosage: 500 MG ONCE PER DAY PO
     Route: 048
     Dates: start: 20101211, end: 20101215

REACTIONS (16)
  - DYSPNOEA [None]
  - TREMOR [None]
  - PAIN IN EXTREMITY [None]
  - ASTHENIA [None]
  - MUSCLE TIGHTNESS [None]
  - PAIN [None]
  - BALANCE DISORDER [None]
  - DIZZINESS [None]
  - DYSGEUSIA [None]
  - GAIT DISTURBANCE [None]
  - CHEST DISCOMFORT [None]
  - DYSPHONIA [None]
  - TENDON DISORDER [None]
  - HEADACHE [None]
  - BLOOD GLUCOSE FLUCTUATION [None]
  - STOMATITIS [None]
